FAERS Safety Report 12106048 (Version 2)
Quarter: 2016Q2

REPORT INFORMATION
  Report Type: Spontaneous
  Country: US (occurrence: US)
  Receive Date: 20160223
  Receipt Date: 20160406
  Transmission Date: 20160815
  Serious: Yes (Other)
  Sender: FDA-Public Use
  Company Number: US-BRISTOL-MYERS SQUIBB COMPANY-BMS-2016-010258

PATIENT
  Age: 52 Year
  Sex: Male

DRUGS (1)
  1. YERVOY [Suspect]
     Active Substance: IPILIMUMAB
     Indication: MALIGNANT MELANOMA
     Dosage: 1350 MG, UNK
     Route: 042
     Dates: start: 20151216, end: 20160106

REACTIONS (5)
  - Rectal haemorrhage [Unknown]
  - Vomiting [Unknown]
  - Diarrhoea [Unknown]
  - Blood urine present [Unknown]
  - Colitis [Unknown]

NARRATIVE: CASE EVENT DATE: 20160116
